FAERS Safety Report 5919404-0 (Version None)
Quarter: 2008Q4

REPORT INFORMATION
  Report Type: 
  Country: None (occurrence: None)
  Receive Date: 20081015
  Receipt Date: 20081001
  Transmission Date: 20090506
  Serious: Yes (Hospitalization)
  Sender: FDA-Public Use
  Company Number: BR-EISAI MEDIAL RESEARCH-E3810-02217-SPO-BR

PATIENT
  Age: 20 Year
  Sex: Female
  Weight: 54 kg

DRUGS (1)
  1. RABEPRAZOLE SODIUM [Suspect]
     Indication: GASTRITIS
     Route: 048
     Dates: start: 20080918, end: 20080920

REACTIONS (4)
  - ABDOMINAL PAIN [None]
  - NAUSEA [None]
  - TREMOR [None]
  - VOMITING [None]
